FAERS Safety Report 12763974 (Version 1)
Quarter: 2016Q3

REPORT INFORMATION
  Report Type: Spontaneous
  Country: US (occurrence: US)
  Receive Date: 20160920
  Receipt Date: 20160920
  Transmission Date: 20161109
  Serious: No
  Sender: FDA-Public Use
  Company Number: US-ASTRAZENECA-2012SE41257

PATIENT
  Age: 76 Year
  Sex: Male
  Weight: 120.2 kg

DRUGS (9)
  1. PULMICORT FLEXHALER [Suspect]
     Active Substance: BUDESONIDE
     Indication: COUGH
     Dosage: 1 PUFF TWICE A DAY
     Route: 055
     Dates: start: 201202
  2. AXELASTINE [Concomitant]
  3. IPRATROPIUM BROMIDE. [Concomitant]
     Active Substance: IPRATROPIUM BROMIDE
  4. LEVAQUIN [Concomitant]
     Active Substance: LEVOFLOXACIN
  5. FLUTICASONE [Concomitant]
     Active Substance: FLUTICASONE\FLUTICASONE PROPIONATE
  6. PULMICORT FLEXHALER [Suspect]
     Active Substance: BUDESONIDE
     Indication: ASTHMA
     Dosage: 1 PUFF TWICE A DAY
     Route: 055
     Dates: start: 201202
  7. INSULIN [Concomitant]
     Active Substance: INSULIN NOS
  8. PULMICORT FLEXHALER [Suspect]
     Active Substance: BUDESONIDE
     Indication: ASTHMA
     Dosage: 2 PUFFS DAILY
     Route: 055
  9. PULMICORT FLEXHALER [Suspect]
     Active Substance: BUDESONIDE
     Indication: COUGH
     Dosage: 2 PUFFS DAILY
     Route: 055

REACTIONS (9)
  - Infection [Unknown]
  - Upper limb fracture [Unknown]
  - Tremor [Unknown]
  - Visual acuity reduced [Unknown]
  - Cough [Unknown]
  - Feeling abnormal [Unknown]
  - Cardiac disorder [Unknown]
  - Drug dose omission [Unknown]
  - Product quality issue [Unknown]
